FAERS Safety Report 8559903-9 (Version None)
Quarter: 2012Q3

REPORT INFORMATION
  Report Type: 
  Country: None (occurrence: None)
  Receive Date: 20120802
  Receipt Date: 20120727
  Transmission Date: 20120928
  Serious: Yes (Death, Hospitalization, Other)
  Sender: FDA-Public Use
  Company Number: PHHO2012DE010583

PATIENT
  Sex: Male
  Weight: 100 kg

DRUGS (4)
  1. DEXAMETHASONE [Suspect]
     Indication: CONFUSIONAL STATE
  2. MORPHINE SULFATE [Concomitant]
     Indication: SEDATION
  3. BGJ398 [Suspect]
     Indication: NEOPLASM
     Dosage: 125 MG, UNK
     Route: 048
     Dates: start: 20120508, end: 20120703
  4. DIAZEPAM [Concomitant]
     Indication: SEDATION

REACTIONS (2)
  - CONFUSIONAL STATE [None]
  - DISEASE PROGRESSION [None]
